FAERS Safety Report 6105728-3 (Version None)
Quarter: 2009Q1

REPORT INFORMATION
  Report Type: 
  Country: None (occurrence: None)
  Receive Date: 20090304
  Receipt Date: 20090304
  Transmission Date: 20090719
  Serious: Yes (Other)
  Sender: FDA-Public Use
  Company Number: None

PATIENT
  Sex: Female
  Weight: 55 kg

DRUGS (8)
  1. ABRAXANE [Suspect]
     Indication: NEOPLASM MALIGNANT
     Dosage: 410 MG D1/CYCLE 042
     Dates: start: 20090209, end: 20090209
  2. VANDETANIB [Suspect]
     Indication: NEOPLASM MALIGNANT
     Dosage: 300 MG QD X 21 DAYS 047
     Dates: start: 20090209, end: 20090223
  3. PANCRELIPASE [Concomitant]
  4. ATENOLOL [Concomitant]
  5. ALPRAZOLAM [Concomitant]
  6. COMPAZINE [Concomitant]
  7. LEXAPRO [Concomitant]
  8. PROBIOTICS [Concomitant]

REACTIONS (2)
  - HAEMOGLOBIN DECREASED [None]
  - PULMONARY EMBOLISM [None]
